FAERS Safety Report 9938595 (Version 1)
Quarter: 2014Q1

REPORT INFORMATION
  Report Type: Spontaneous
  Country: JP (occurrence: JP)
  Receive Date: 20140303
  Receipt Date: 20140303
  Transmission Date: 20141002
  Serious: Yes (Other)
  Sender: FDA-Public Use
  Company Number: JP-JNJFOC-20140218541

PATIENT
  Age: 7 Decade
  Sex: Female

DRUGS (3)
  1. SIMPONI [Suspect]
     Indication: PRODUCT USED FOR UNKNOWN INDICATION
     Route: 058
     Dates: start: 20120705
  2. METHOTREXATE [Concomitant]
     Route: 065
  3. IGURATIMOD [Concomitant]
     Route: 047

REACTIONS (1)
  - Lymphoma [Unknown]
